FAERS Safety Report 8111366-3 (Version None)
Quarter: 2012Q1

REPORT INFORMATION
  Report Type: 
  Country: None (occurrence: None)
  Receive Date: 20120203
  Receipt Date: 20111011
  Transmission Date: 20120608
  Serious: No
  Sender: FDA-Public Use
  Company Number: US-GLAXOSMITHKLINE-A0948639A

PATIENT
  Age: 54 Year
  Sex: Male

DRUGS (8)
  1. PAXIL [Concomitant]
  2. SENNA [Concomitant]
  3. VITAMIN D [Concomitant]
  4. CLONAZEPAM [Concomitant]
  5. LAMICTAL [Suspect]
     Indication: CONVULSION
     Route: 048
     Dates: start: 20110926
  6. AMITIZA [Concomitant]
  7. DILANTIN [Concomitant]
  8. CALCIUM [Concomitant]

REACTIONS (3)
  - RASH FOLLICULAR [None]
  - PRURITUS GENERALISED [None]
  - ACNE [None]
